FAERS Safety Report 18158152 (Version 2)
Quarter: 2020Q3

REPORT INFORMATION
  Report Type: Spontaneous
  Country: US (occurrence: US)
  Receive Date: 20200817
  Receipt Date: 20200928
  Transmission Date: 20201103
  Serious: Yes (Hospitalization, Other)
  Sender: FDA-Public Use
  Company Number: US-SHIRE-US202026443

PATIENT
  Age: 56 Year
  Sex: Female

DRUGS (4)
  1. GATTEX [Suspect]
     Active Substance: TEDUGLUTIDE\WATER
     Indication: PRODUCT USED FOR UNKNOWN INDICATION
     Dosage: 0.435 UNK, 1X/DAY:QD
     Route: 058
     Dates: start: 20190910
  2. GATTEX [Suspect]
     Active Substance: TEDUGLUTIDE\WATER
     Indication: PRODUCT USED FOR UNKNOWN INDICATION
     Dosage: 0.435 UNK, 1X/DAY:QD
     Route: 058
     Dates: start: 20190910
  3. GATTEX [Suspect]
     Active Substance: TEDUGLUTIDE\WATER
     Indication: PRODUCT USED FOR UNKNOWN INDICATION
     Dosage: 0.435 UNK, 1X/DAY:QD
     Route: 058
     Dates: start: 20190910
  4. GATTEX [Suspect]
     Active Substance: TEDUGLUTIDE\WATER
     Indication: PRODUCT USED FOR UNKNOWN INDICATION
     Dosage: 0.435 UNK, 1X/DAY:QD
     Route: 058
     Dates: start: 20190910

REACTIONS (4)
  - Chronic kidney disease [Unknown]
  - Hypotension [Recovering/Resolving]
  - Iron deficiency [Unknown]
  - Myocardial infarction [Recovered/Resolved]

NARRATIVE: CASE EVENT DATE: 20200228
